FAERS Safety Report 4883822-2 (Version None)
Quarter: 2006Q1

REPORT INFORMATION
  Report Type: 
  Country: None (occurrence: None)
  Receive Date: 20060113
  Receipt Date: 20051230
  Transmission Date: 20060701
  Serious: Yes (Hospitalization)
  Sender: FDA-Public Use
  Company Number: 8013897

PATIENT
  Age: 70 Year
  Sex: Male
  Weight: 99 kg

DRUGS (5)
  1. KEPPRA [Suspect]
     Indication: MYOCLONUS
     Dosage: 250 MG 2/D PO
     Route: 048
     Dates: start: 20051101, end: 20051201
  2. KLONOPIN [Suspect]
     Indication: MYOCLONUS
     Dosage: 2.5 MG /D PO
     Route: 048
     Dates: start: 20051101, end: 20051201
  3. ASPIRIN [Suspect]
     Dosage: PO
     Route: 048
  4. VERAPAMIL [Concomitant]
  5. COUMADIN [Concomitant]

REACTIONS (11)
  - CARBOXYHAEMOGLOBIN INCREASED [None]
  - HAEMODIALYSIS [None]
  - HYPOACUSIS [None]
  - METABOLIC ACIDOSIS [None]
  - NAUSEA [None]
  - RESPIRATORY RATE INCREASED [None]
  - SEPSIS [None]
  - SHIFT TO THE LEFT [None]
  - THERAPEUTIC AGENT TOXICITY [None]
  - TINNITUS [None]
  - VOMITING [None]
